FAERS Safety Report 13272506 (Version 11)
Quarter: 2018Q1

REPORT INFORMATION
  Report Type: Spontaneous
  Country: US (occurrence: US)
  Receive Date: 20170227
  Receipt Date: 20180207
  Transmission Date: 20180508
  Serious: Yes (Other)
  Sender: FDA-Public Use
  Company Number: PHEH2017US005811

PATIENT
  Age: 23 Year
  Sex: Female

DRUGS (2)
  1. ONDANSETRON [Suspect]
     Active Substance: ONDANSETRON
     Indication: VOMITING IN PREGNANCY
     Dosage: 4 MG, PRN
     Route: 065
     Dates: start: 20141103, end: 201501
  2. ZOFRAN [Suspect]
     Active Substance: ONDANSETRON HYDROCHLORIDE
     Indication: PRODUCT USED FOR UNKNOWN INDICATION
     Dosage: 4 MG, Q6H
     Route: 048
     Dates: start: 20141119

REACTIONS (28)
  - Emotional distress [Unknown]
  - Product use in unapproved indication [Unknown]
  - Injury [Unknown]
  - Upper respiratory tract infection [Unknown]
  - Urticaria [Unknown]
  - Foetal hypokinesia [Unknown]
  - Premature labour [Unknown]
  - Haemorrhage [Unknown]
  - Limb injury [Unknown]
  - Lymphadenopathy [Unknown]
  - Menometrorrhagia [Unknown]
  - Pain in extremity [Unknown]
  - Groin pain [Unknown]
  - Nicotine dependence [Unknown]
  - Post-traumatic stress disorder [Unknown]
  - Gait disturbance [Unknown]
  - Anxiety [Unknown]
  - Vaginal haemorrhage [Unknown]
  - Premature delivery [Unknown]
  - Maternal exposure during pregnancy [Unknown]
  - Vaginal discharge [Unknown]
  - Ecchymosis [Unknown]
  - Contusion [Unknown]
  - Fall [Unknown]
  - Mood altered [Unknown]
  - Bipolar disorder [Unknown]
  - Abdominal pain lower [Unknown]
  - Cough [Unknown]

NARRATIVE: CASE EVENT DATE: 20150516
